FAERS Safety Report 8506641-4 (Version None)
Quarter: 2012Q3

REPORT INFORMATION
  Report Type: 
  Country: None (occurrence: None)
  Receive Date: 20120712
  Receipt Date: 20120709
  Transmission Date: 20120928
  Serious: No
  Sender: FDA-Public Use
  Company Number: US-PFIZER INC-2012165511

PATIENT
  Sex: Female
  Weight: 50.34 kg

DRUGS (5)
  1. GABAPENTIN [Suspect]
     Indication: NEUROPATHY PERIPHERAL
     Dosage: UNK
  2. VASOTEC [Concomitant]
     Indication: HYPERTENSION
     Dosage: 5 MG, DAILY
  3. FOSAMAX [Concomitant]
     Indication: BONE DISORDER
     Dosage: 70 MG, WEEKLY
  4. LIPITOR [Suspect]
     Indication: HYPERTENSION
     Dosage: 10 MG, DAILY
     Route: 048
  5. POTASSIUM [Concomitant]
     Indication: BONE DISORDER
     Dosage: 40 MG, MONTHLY

REACTIONS (3)
  - DRUG INEFFECTIVE [None]
  - NEUROPATHY PERIPHERAL [None]
  - GAIT DISTURBANCE [None]
